FAERS Safety Report 6793024-0 (Version None)
Quarter: 2010Q2

REPORT INFORMATION
  Report Type: 
  Country: None (occurrence: None)
  Receive Date: 20100624
  Receipt Date: 20081119
  Transmission Date: 20101027
  Serious: No
  Sender: FDA-Public Use
  Company Number: US-PFIZER INC-2008098225

PATIENT
  Sex: Female

DRUGS (1)
  1. GEODON [Suspect]
     Indication: DRUG ABUSE
     Dates: start: 20070101

REACTIONS (2)
  - VOMITING [None]
  - WITHDRAWAL SYNDROME [None]
